FAERS Safety Report 9271707 (Version 2)
Quarter: 2013Q2

REPORT INFORMATION
  Report Type: Spontaneous
  Country: US (occurrence: US)
  Receive Date: 20130506
  Receipt Date: 20130618
  Transmission Date: 20140414
  Serious: Yes (Death, Hospitalization, Other)
  Sender: FDA-Public Use
  Company Number: US-PFIZER INC-2013136671

PATIENT
  Age: 78 Year
  Sex: Female
  Weight: 37.74 kg

DRUGS (1)
  1. REVATIO [Suspect]
     Indication: PULMONARY ARTERIAL HYPERTENSION
     Dosage: 20 MG, 3X/DAY
     Dates: start: 20090224

REACTIONS (3)
  - Respiratory failure [Fatal]
  - Aspiration [Fatal]
  - Clostridium difficile colitis [Unknown]
